FAERS Safety Report 8840931 (Version 2)
Quarter: 2012Q4

REPORT INFORMATION
  Report Type: 
  Country: US (occurrence: US)
  Receive Date: 20121015
  Receipt Date: 20121203
  Transmission Date: 20130627
  Serious: Yes (Hospitalization)
  Sender: FDA-Public Use
  Company Number: PHHY2012US087485

PATIENT
  Age: 24 Year
  Sex: Male

DRUGS (4)
  1. HALOPERIDOL [Suspect]
     Indication: SCHIZOPHRENIA
     Route: 048
  2. ILOPERIDONE [Suspect]
     Indication: SCHIZOPHRENIA
     Dosage: 1 mg, BID
  3. ILOPERIDONE [Suspect]
     Dosage: 2 mg, BID
  4. ILOPERIDONE [Suspect]
     Dosage: 4 mg, ONCE/SINGLE

REACTIONS (9)
  - Angioedema [Recovered/Resolved]
  - Oropharyngeal swelling [Unknown]
  - Lip swelling [Recovered/Resolved]
  - Rash erythematous [Recovered/Resolved]
  - Dyspnoea [Recovered/Resolved]
  - Swelling face [Unknown]
  - Swollen tongue [Unknown]
  - Apraxia [Unknown]
  - Tachypnoea [Recovered/Resolved]
